FAERS Safety Report 10335019 (Version 2)
Quarter: 2014Q3

REPORT INFORMATION
  Report Type: Spontaneous
  Country: CN (occurrence: CN)
  Receive Date: 20140723
  Receipt Date: 20140728
  Transmission Date: 20150326
  Serious: Yes (Other)
  Sender: FDA-Public Use
  Company Number: CN-JNJFOC-20140709306

PATIENT
  Age: 7 Year
  Sex: Female

DRUGS (3)
  1. TOPAMAX [Suspect]
     Active Substance: TOPIRAMATE
     Indication: EPILEPSY
     Route: 048
     Dates: start: 201210, end: 201302
  2. TOPAMAX [Suspect]
     Active Substance: TOPIRAMATE
     Indication: EPILEPSY
     Dosage: DOSAGE OF 1.25 TABLET EVERY DAY
     Route: 048
     Dates: start: 201302
  3. TOPAMAX [Suspect]
     Active Substance: TOPIRAMATE
     Indication: EPILEPSY
     Dosage: DOSAGE WAS 0.5 TABLET A DAY
     Route: 048
     Dates: start: 201203, end: 201210

REACTIONS (4)
  - Wrong technique in drug usage process [Unknown]
  - Convulsion [Not Recovered/Not Resolved]
  - Product counterfeit [Unknown]
  - Epilepsy [Not Recovered/Not Resolved]

NARRATIVE: CASE EVENT DATE: 201302
